FAERS Safety Report 15460101 (Version 1)
Quarter: 2018Q4

REPORT INFORMATION
  Report Type: Report from Study
  Country: None (occurrence: US)
  Receive Date: 20181003
  Receipt Date: 20181003
  Transmission Date: 20190204
  Serious: Yes (Other)
  Sender: FDA-Public Use
  Company Number: US-ABBVIE-18K-163-2368183-00

PATIENT
  Age: 75 Year
  Sex: Male

DRUGS (17)
  1. AMIODARONE [Suspect]
     Active Substance: AMIODARONE
     Dosage: DOSE DECREASED
     Route: 065
  2. SUCRALFATE. [Suspect]
     Active Substance: SUCRALFATE
     Indication: OROPHARYNGEAL DISCOMFORT
     Route: 065
     Dates: start: 20180910, end: 201809
  3. RANITIDINE. [Suspect]
     Active Substance: RANITIDINE
     Indication: OROPHARYNGEAL DISCOMFORT
     Route: 065
     Dates: start: 20180910, end: 201809
  4. THYROXINE [Concomitant]
     Active Substance: LEVOTHYROXINE
     Indication: HYPOTHYROIDISM
  5. FAMOTIDINE. [Concomitant]
     Active Substance: FAMOTIDINE
     Indication: PRODUCT USED FOR UNKNOWN INDICATION
  6. FLOMAX [Concomitant]
     Active Substance: TAMSULOSIN HYDROCHLORIDE
     Indication: PRODUCT USED FOR UNKNOWN INDICATION
  7. VENCLEXTA [Suspect]
     Active Substance: VENETOCLAX
     Indication: CHRONIC LYMPHOCYTIC LEUKAEMIA
     Route: 048
  8. AMIODARONE [Suspect]
     Active Substance: AMIODARONE
     Indication: VENTRICULAR EXTRASYSTOLES
     Route: 065
  9. METOPROLOL. [Concomitant]
     Active Substance: METOPROLOL
     Indication: CARDIAC DISORDER
  10. TYLENOL [Concomitant]
     Active Substance: ACETAMINOPHEN
     Indication: PRODUCT USED FOR UNKNOWN INDICATION
  11. OMEPRAZOL [Suspect]
     Active Substance: OMEPRAZOLE
     Indication: OROPHARYNGEAL DISCOMFORT
     Route: 065
     Dates: start: 20180910, end: 201809
  12. LOPERAMIDE [Concomitant]
     Active Substance: LOPERAMIDE
     Indication: DIARRHOEA
  13. ARTIFICIAL TEARS [Concomitant]
     Active Substance: GLYCERIN\HYPROMELLOSES\POLYETHYLENE GLYCOL 400
     Indication: PRODUCT USED FOR UNKNOWN INDICATION
  14. LIPITOR [Concomitant]
     Active Substance: ATORVASTATIN CALCIUM
     Indication: PRODUCT USED FOR UNKNOWN INDICATION
  15. VENCLEXTA [Suspect]
     Active Substance: VENETOCLAX
     Dosage: DOSE DECREASED
     Route: 048
  16. ASPIRIN. [Concomitant]
     Active Substance: ASPIRIN
     Indication: PRODUCT USED FOR UNKNOWN INDICATION
  17. FLONASE [Concomitant]
     Active Substance: FLUTICASONE PROPIONATE
     Indication: PRODUCT USED FOR UNKNOWN INDICATION
     Route: 045

REACTIONS (12)
  - Ventricular extrasystoles [Unknown]
  - Oropharyngeal discomfort [Unknown]
  - Gastric disorder [Not Recovered/Not Resolved]
  - Potentiating drug interaction [Unknown]
  - Dyspnoea [Unknown]
  - Dysphagia [Not Recovered/Not Resolved]
  - Nausea [Unknown]
  - Blister [Unknown]
  - Breast mass [Unknown]
  - Diarrhoea [Unknown]
  - Abdominal distension [Unknown]
  - Sleep apnoea syndrome [Unknown]

NARRATIVE: CASE EVENT DATE: 20180309
